FAERS Safety Report 7535351-5 (Version None)
Quarter: 2011Q2

REPORT INFORMATION
  Report Type: 
  Country: None (occurrence: None)
  Receive Date: 20110609
  Receipt Date: 20080423
  Transmission Date: 20111010
  Serious: Yes (Other)
  Sender: FDA-Public Use
  Company Number: PHHY2008CA06412

PATIENT
  Sex: Female

DRUGS (1)
  1. CLOZAPINE [Suspect]
     Dates: start: 20080319

REACTIONS (3)
  - HYPERTHERMIA [None]
  - LYMPHOCYTE COUNT DECREASED [None]
  - INFLUENZA [None]
